FAERS Safety Report 17214127 (Version 3)
Quarter: 2020Q1

REPORT INFORMATION
  Report Type: Spontaneous
  Country: US (occurrence: US)
  Receive Date: 20191230
  Receipt Date: 20200303
  Transmission Date: 20200409
  Serious: No
  Sender: FDA-Public Use
  Company Number: US-PFIZER INC-2019552109

PATIENT
  Age: 71 Year
  Sex: Female
  Weight: 60.32 kg

DRUGS (3)
  1. CELEBREX [Suspect]
     Active Substance: CELECOXIB
     Indication: ARTHRITIS
     Dosage: 2 DF, 2X/DAY [TAKING TWO PILLS A DAY: ONE IN THE MORNING, AND ONE AT NIGHT]
  2. CORTISONE [Concomitant]
     Active Substance: CORTISONE
     Dosage: UNK
  3. CELEBREX [Suspect]
     Active Substance: CELECOXIB
     Dosage: 2 DF, 1X/DAY

REACTIONS (5)
  - Fall [Unknown]
  - Pain [Unknown]
  - Gastrointestinal disorder [Unknown]
  - Sciatica [Unknown]
  - Malaise [Unknown]
